FAERS Safety Report 6511629-9 (Version None)
Quarter: 2009Q4

REPORT INFORMATION
  Report Type: 
  Country: None (occurrence: None)
  Receive Date: 20091222
  Receipt Date: 20090504
  Transmission Date: 20100525
  Serious: No
  Sender: FDA-Public Use
  Company Number: US-ASTRAZENECA-2009UW11202

PATIENT
  Age: 20044 Day
  Sex: Male
  Weight: 86.2 kg

DRUGS (2)
  1. CRESTOR [Suspect]
     Route: 048
     Dates: start: 20070707, end: 20090503
  2. LISINOPRIL [Concomitant]

REACTIONS (1)
  - VISUAL ACUITY REDUCED [None]
